FAERS Safety Report 4602663-4 (Version None)
Quarter: 2005Q1

REPORT INFORMATION
  Report Type: 
  Country: None (occurrence: None)
  Receive Date: 20050307
  Receipt Date: 20050126
  Transmission Date: 20050727
  Serious: Yes (Hospitalization)
  Sender: FDA-Public Use
  Company Number: 2005023299

PATIENT
  Age: 66 Year
  Sex: Female
  Weight: 81.7 kg

DRUGS (9)
  1. CELEBREX [Suspect]
     Indication: BREAST CANCER
     Dosage: 800 MG (400 MG, 2 IM 1 D),, ORAL
     Route: 048
     Dates: start: 20040831
  2. EXEMESTANE [Suspect]
     Indication: BREAST CANCER
     Dosage: 25 MG (25 MG, 1 IN 1 D), ORAL
     Route: 048
     Dates: start: 20040831
  3. LISINOPRIL [Concomitant]
  4. FAMOTIDINE [Concomitant]
  5. PRAVASTATIN SODIUM [Concomitant]
  6. CELECOXIB (CELECOXIB) [Concomitant]
  7. QUININE (QUININE) [Concomitant]
  8. ASPIRIN [Concomitant]
  9. MAGNESIUM (MAGNESIUM) [Concomitant]

REACTIONS (3)
  - MITRAL VALVE INCOMPETENCE [None]
  - MYOCARDIAL INFARCTION [None]
  - MYOCARDIAL ISCHAEMIA [None]
